FAERS Safety Report 5473334-X (Version None)
Quarter: 2007Q3

REPORT INFORMATION
  Report Type: 
  Country: None (occurrence: None)
  Receive Date: 20070824
  Receipt Date: 20070426
  Transmission Date: 20080115
  Serious: Yes (Life-Threatening, Hospitalization, Disabling, Other)
  Sender: FDA-Public Use
  Company Number: WAES 0704USA06558

PATIENT
  Age: 66 Year
  Sex: Female
  Weight: 78.4723 kg

DRUGS (3)
  1. VYTORIN [Suspect]
     Indication: DYSLIPIDAEMIA
     Dosage: 10-20 MG/DAILY/PO
     Route: 048
     Dates: start: 20061219, end: 20070325
  2. TOPROL-XL [Concomitant]
  3. THERAPY UNSPECIFIED [Concomitant]

REACTIONS (1)
  - PANCREATITIS ACUTE [None]
